FAERS Safety Report 8890505 (Version 2)
Quarter: 2012Q4

REPORT INFORMATION
  Report Type: 
  Country: MT (occurrence: MT)
  Receive Date: 20121107
  Receipt Date: 20121203
  Transmission Date: 20130627
  Serious: Yes (Other)
  Sender: FDA-Public Use
  Company Number: MT-009507513-1211MLT000594

PATIENT
  Age: 13 Year
  Sex: Female

DRUGS (1)
  1. SINGULAIR TABLETS 10MG [Suspect]
     Dosage: 5 mg, qd
     Route: 048

REACTIONS (2)
  - Allergic granulomatous angiitis [Recovering/Resolving]
  - Wrong technique in drug usage process [Unknown]
